FAERS Safety Report 4616144-5 (Version None)
Quarter: 2005Q1

REPORT INFORMATION
  Report Type: 
  Country: None (occurrence: None)
  Receive Date: 20050323
  Receipt Date: 20050311
  Transmission Date: 20050727
  Serious: Yes (Hospitalization, Other)
  Sender: FDA-Public Use
  Company Number: JP-NOVOPROD-242896

PATIENT
  Age: 71 Year
  Sex: Female

DRUGS (1)
  1. NOVORAPID 30 MIX CHU PENFILL [Suspect]
     Indication: INSULIN-REQUIRING TYPE II DIABETES MELLITUS
     Dosage: 24 IU, QD
     Route: 058
     Dates: start: 20041201, end: 20050301

REACTIONS (1)
  - EXANTHEM [None]
